FAERS Safety Report 17315485 (Version 1)
Quarter: 2020Q1

REPORT INFORMATION
  Report Type: Spontaneous
  Country: CA (occurrence: CA)
  Receive Date: 20200124
  Receipt Date: 20200124
  Transmission Date: 20200409
  Serious: Yes (Other)
  Sender: FDA-Public Use
  Company Number: CA-TEVA-2020-CA-1172461

PATIENT
  Age: 74 Year
  Sex: Male
  Weight: 184 kg

DRUGS (15)
  1. EFFEXOR [Concomitant]
     Active Substance: VENLAFAXINE HYDROCHLORIDE
     Dosage: 300 MILLIGRAM DAILY;
  2. NIFEDIPINE. [Concomitant]
     Active Substance: NIFEDIPINE
  3. TYLENOL [Concomitant]
     Active Substance: ACETAMINOPHEN
     Indication: ARTHRITIS
  4. FUROSEMIDE. [Suspect]
     Active Substance: FUROSEMIDE
     Dosage: 20 MILLIGRAM DAILY;
     Dates: start: 20200113
  5. METRONIDAZOLE. [Concomitant]
     Active Substance: METRONIDAZOLE
  6. IRBESARTAN. [Concomitant]
     Active Substance: IRBESARTAN
  7. LEVOTHYROXINE. [Concomitant]
     Active Substance: LEVOTHYROXINE
  8. TAMSULOSIN [Concomitant]
     Active Substance: TAMSULOSIN
  9. CLONAZEPAM. [Concomitant]
     Active Substance: CLONAZEPAM
     Dosage: PRN
  10. TRAZODONE [Concomitant]
     Active Substance: TRAZODONE HYDROCHLORIDE
     Dosage: 1/2 TAB
  11. METFORMIN [Concomitant]
     Active Substance: METFORMIN HYDROCHLORIDE
     Dosage: 1000 MILLIGRAM DAILY;
  12. PANTOPRAZOLE [Concomitant]
     Active Substance: PANTOPRAZOLE
  13. APIDRA [Concomitant]
     Active Substance: INSULIN GLULISINE
     Dosage: INSULIN:LANTUS INSULIN
  14. ATORVASTATIN [Concomitant]
     Active Substance: ATORVASTATIN
  15. TRAMADOL. [Concomitant]
     Active Substance: TRAMADOL

REACTIONS (5)
  - Asthenia [Unknown]
  - Movement disorder [Unknown]
  - Somnolence [Unknown]
  - Walking aid user [Unknown]
  - Fall [Unknown]
